FAERS Safety Report 12608070 (Version 1)
Quarter: 2016Q3

REPORT INFORMATION
  Report Type: Not Available
  Country: FR (occurrence: FR)
  Receive Date: 20160729
  Receipt Date: 20160729
  Transmission Date: 20161109
  Serious: Yes (Death, Hospitalization)
  Sender: FDA-Public Use
  Company Number: FR-PURDUE-GBR-2016-0036963

PATIENT
  Age: 55 Year
  Sex: Female

DRUGS (5)
  1. LYRICA [Suspect]
     Active Substance: PREGABALIN
     Indication: PRODUCT USED FOR UNKNOWN INDICATION
     Dosage: 3/DAY
     Route: 048
     Dates: end: 20160521
  2. OXYNORM [Suspect]
     Active Substance: OXYCODONE HYDROCHLORIDE
     Indication: PAIN
     Dosage: UNK
     Route: 048
     Dates: end: 20160521
  3. BACLOFEN. [Suspect]
     Active Substance: BACLOFEN
     Indication: MYOCLONUS
     Dosage: 1 TABLET, AM [2DF TOTAL]
     Route: 048
     Dates: start: 20160520, end: 20160521
  4. OXYCONTIN [Suspect]
     Active Substance: OXYCODONE HYDROCHLORIDE
     Indication: PAIN
     Dosage: UNK
     Route: 048
     Dates: end: 20160521
  5. BACLOFEN. [Suspect]
     Active Substance: BACLOFEN
     Dosage: 1 TABLET, PM
     Route: 065
     Dates: start: 20160520

REACTIONS (5)
  - Myoclonus [Recovered/Resolved]
  - Consciousness fluctuating [Recovered/Resolved]
  - Dysarthria [Recovered/Resolved]
  - Malignant neoplasm progression [Fatal]
  - Overdose [Recovered/Resolved]

NARRATIVE: CASE EVENT DATE: 2016
